FAERS Safety Report 6391509-2 (Version None)
Quarter: 2009Q4

REPORT INFORMATION
  Report Type: 
  Country: None (occurrence: None)
  Receive Date: 20091006
  Receipt Date: 20091006
  Transmission Date: 20100525
  Serious: Yes (Hospitalization)
  Sender: FDA-Public Use
  Company Number: None

PATIENT
  Sex: Female
  Weight: 58.9676 kg

DRUGS (2)
  1. DIPHENHYDRAMINE HCL [Suspect]
  2. BENADRYL [Suspect]

REACTIONS (4)
  - FEELING ABNORMAL [None]
  - HALLUCINATION [None]
  - PRODUCT LABEL ISSUE [None]
  - PSYCHOTIC DISORDER [None]
